FAERS Safety Report 14814439 (Version 1)
Quarter: 2018Q2

REPORT INFORMATION
  Report Type: Spontaneous
  Country: US (occurrence: US)
  Receive Date: 20180426
  Receipt Date: 20180426
  Transmission Date: 20180711
  Serious: No
  Sender: FDA-Public Use
  Company Number: US-HORIZON-PRE-0165-2018

PATIENT
  Sex: Male

DRUGS (1)
  1. RAYOS [Suspect]
     Active Substance: PREDNISONE
     Indication: PRODUCT USED FOR UNKNOWN INDICATION
     Dosage: 1 MG TID, PATIENT RECEIVED 5 MG TABS INSTEAD OF 1 MG

REACTIONS (3)
  - Drug dispensing error [Recovered/Resolved]
  - Off label use [Unknown]
  - Weight increased [Recovered/Resolved]
